FAERS Safety Report 22115028 (Version 3)
Quarter: 2023Q2

REPORT INFORMATION
  Report Type: Report from Study
  Country: US (occurrence: US)
  Receive Date: 20230320
  Receipt Date: 20230608
  Transmission Date: 20230722
  Serious: No
  Sender: FDA-Public Use
  Company Number: US-002147023-NVSC2023US063791

PATIENT
  Age: 47 Year
  Sex: Female
  Weight: 100 kg

DRUGS (2)
  1. ILARIS [Suspect]
     Active Substance: CANAKINUMAB
     Indication: Still^s disease
     Dosage: 150 MG, EVERY 4 WEEKS
     Route: 058
     Dates: end: 20230101
  2. ILARIS [Suspect]
     Active Substance: CANAKINUMAB
     Dosage: 150 MG, QMO
     Route: 058

REACTIONS (6)
  - Feeling abnormal [Not Recovered/Not Resolved]
  - Irritability [Not Recovered/Not Resolved]
  - Pain [Not Recovered/Not Resolved]
  - Insomnia [Not Recovered/Not Resolved]
  - Fatigue [Not Recovered/Not Resolved]
  - Inappropriate schedule of product administration [Unknown]

NARRATIVE: CASE EVENT DATE: 20230313
